FAERS Safety Report 24526851 (Version 1)
Quarter: 2024Q4

REPORT INFORMATION
  Report Type: Report from Study
  Country: US (occurrence: US)
  Receive Date: 20241021
  Receipt Date: 20241021
  Transmission Date: 20250115
  Serious: No
  Sender: ROCHE
  Company Number: US-ROCHE-3549108

PATIENT
  Age: 66 Year
  Sex: Male

DRUGS (1)
  1. ZELBORAF [Suspect]
     Active Substance: VEMURAFENIB
     Indication: Malignant neoplasm of choroid
     Dosage: TAKE 3 TABLET(S) BY MOUTH (720MG) TWICE A DAY EVERY DAY
     Route: 048

REACTIONS (3)
  - Product prescribing error [Unknown]
  - Off label use [Unknown]
  - No adverse event [Unknown]
